FAERS Safety Report 8513911-2 (Version None)
Quarter: 2012Q3

REPORT INFORMATION
  Report Type: 
  Country: None (occurrence: None)
  Receive Date: 20120717
  Receipt Date: 20120711
  Transmission Date: 20120928
  Serious: Yes (Other)
  Sender: FDA-Public Use
  Company Number: BR-BAYER-2012-069684

PATIENT
  Sex: Female

DRUGS (3)
  1. YASMIN [Suspect]
     Indication: HEADACHE
  2. YASMIN [Suspect]
     Indication: CONTRACEPTION
     Dosage: QD
     Route: 048
  3. ANTIDEPRESSANTS [Concomitant]
     Indication: DEPRESSION

REACTIONS (7)
  - SUICIDAL IDEATION [None]
  - CRYING [None]
  - BREAST PAIN [None]
  - MENTAL DISORDER [None]
  - SKIN DISORDER [None]
  - APATHY [None]
  - HEADACHE [None]
